FAERS Safety Report 16320463 (Version 1)
Quarter: 2019Q2

REPORT INFORMATION
  Report Type: Spontaneous
  Country: US (occurrence: US)
  Receive Date: 20190515
  Receipt Date: 20190515
  Transmission Date: 20190711
  Serious: Yes (Disabling, Other)
  Sender: FDA-Public Use
  Company Number: None

PATIENT
  Sex: Female

DRUGS (1)
  1. ORILISSA [Suspect]
     Active Substance: ELAGOLIX SODIUM

REACTIONS (9)
  - Tremor [None]
  - Feeding disorder [None]
  - Anxiety [None]
  - Dizziness [None]
  - Panic attack [None]
  - Drug interaction [None]
  - Suicidal ideation [None]
  - Vomiting [None]
  - Crying [None]

NARRATIVE: CASE EVENT DATE: 20190505
